FAERS Safety Report 18257768 (Version 1)
Quarter: 2020Q3

REPORT INFORMATION
  Report Type: Spontaneous
  Country: JP (occurrence: JP)
  Receive Date: 20200911
  Receipt Date: 20200911
  Transmission Date: 20201103
  Serious: Yes (Other)
  Sender: FDA-Public Use
  Company Number: JP-AMGEN-JPNSP2020146963

PATIENT
  Age: 68 Year
  Sex: Female

DRUGS (2)
  1. PRALIA [Suspect]
     Active Substance: DENOSUMAB
     Indication: PRODUCT USED FOR UNKNOWN INDICATION
     Dosage: 60 MG, ONCE EVERY 6 MO
     Route: 065
     Dates: start: 201808, end: 20200811
  2. STEROIDS [Concomitant]
     Active Substance: UNSPECIFIED INGREDIENT
     Dosage: 5 MG
     Route: 065

REACTIONS (2)
  - Fracture [Recovered/Resolved]
  - Fall [Recovered/Resolved]

NARRATIVE: CASE EVENT DATE: 20200623
